FAERS Safety Report 9663201 (Version 2)
Quarter: 2013Q4

REPORT INFORMATION
  Report Type: Spontaneous
  Country: GB (occurrence: GB)
  Receive Date: 20131101
  Receipt Date: 20131125
  Transmission Date: 20140711
  Serious: No
  Sender: FDA-Public Use
  Company Number: GB-BIOGENIDEC-2013BI102857

PATIENT
  Sex: Male

DRUGS (1)
  1. AVONEX [Suspect]
     Indication: RELAPSING-REMITTING MULTIPLE SCLEROSIS
     Route: 030
     Dates: start: 201208

REACTIONS (3)
  - Sperm concentration decreased [Unknown]
  - Male genital examination abnormal [Unknown]
  - Relapsing-remitting multiple sclerosis [Unknown]
